FAERS Safety Report 5397429-4 (Version None)
Quarter: 2007Q3

REPORT INFORMATION
  Report Type: 
  Country: None (occurrence: None)
  Receive Date: 20070723
  Receipt Date: 20070723
  Transmission Date: 20080115
  Serious: Yes (Other)
  Sender: FDA-Public Use
  Company Number: None

PATIENT
  Age: 60 Year
  Sex: Female
  Weight: 69.4003 kg

DRUGS (8)
  1. XOLAIR [Suspect]
     Indication: ASTHMA
     Dosage: 300MG Q 2 WKS SUBCUT.
     Route: 058
     Dates: start: 20070106, end: 20070516
  2. ADVAIR DISKUS 100/50 [Concomitant]
  3. SINGULAIR [Concomitant]
  4. NEXIUM [Concomitant]
  5. ENBREL [Concomitant]
  6. SULFASALASINE [Concomitant]
  7. LIPITOR [Concomitant]
  8. FLONASE [Concomitant]

REACTIONS (3)
  - CHEST DISCOMFORT [None]
  - FLUSHING [None]
  - URTICARIA [None]
